FAERS Safety Report 8513761-7 (Version None)
Quarter: 2012Q3

REPORT INFORMATION
  Report Type: 
  Country: None (occurrence: None)
  Receive Date: 20120705
  Receipt Date: 20120621
  Transmission Date: 20120928
  Serious: Yes (Death)
  Sender: FDA-Public Use
  Company Number: UTC-019715

PATIENT
  Age: 83 Year
  Sex: Female
  Weight: 50 kg

DRUGS (2)
  1. TYVASO [Suspect]
     Indication: PULMONARY ARTERIAL HYPERTENSION
     Dosage: 18-54 MCG (4 IN 1 D), INHALATION
     Route: 055
     Dates: start: 20100115
  2. TRACLEER [Concomitant]

REACTIONS (2)
  - UNRESPONSIVE TO STIMULI [None]
  - AORTIC DISSECTION [None]
